FAERS Safety Report 21808833 (Version 2)
Quarter: 2023Q4

REPORT INFORMATION
  Report Type: Report from Study
  Country: US (occurrence: US)
  Receive Date: 20230103
  Receipt Date: 20231002
  Transmission Date: 20240109
  Serious: Yes (Hospitalization, Other)
  Sender: FDA-Public Use
  Company Number: US-SA-SAC20221230000475

PATIENT
  Age: 56 Year
  Sex: Female

DRUGS (2)
  1. LEMTRADA [Suspect]
     Active Substance: ALEMTUZUMAB
     Indication: Multiple sclerosis
     Dosage: 12 MG FOR 5 CONSECUTIVE DAYS
     Route: 041
     Dates: start: 20170116, end: 201701
  2. LEMTRADA [Suspect]
     Active Substance: ALEMTUZUMAB
     Dosage: 12 MG FOR 3 CONSECUTIVE DAYS
     Route: 041
     Dates: end: 20200115

REACTIONS (5)
  - Endocrine ophthalmopathy [Unknown]
  - Hypoparathyroidism [Unknown]
  - Autoimmune thyroiditis [Unknown]
  - Graves^ disease [Unknown]
  - Hypocalcaemia [Unknown]

NARRATIVE: CASE EVENT DATE: 20191101
